FAERS Safety Report 6115454-2 (Version None)
Quarter: 2009Q1

REPORT INFORMATION
  Report Type: 
  Country: None (occurrence: None)
  Receive Date: 20090313
  Receipt Date: 20090303
  Transmission Date: 20090719
  Serious: Yes (Other)
  Sender: FDA-Public Use
  Company Number: DE-JNJFOC-20081200085

PATIENT
  Sex: Female

DRUGS (5)
  1. TOPAMAX [Suspect]
     Indication: MIGRAINE PROPHYLAXIS
     Dosage: 0-0-1
     Route: 048
  2. ZOLMITRIPTAN [Concomitant]
     Indication: MIGRAINE
     Route: 065
  3. BISOPROLOL [Concomitant]
     Indication: TACHYCARDIA PAROXYSMAL
     Route: 065
  4. BISOPROLOL [Concomitant]
     Indication: MIGRAINE PROPHYLAXIS
     Dosage: 1-0-0
     Route: 065
  5. DROSPIRENONE AND ETHINYL ESTRADIOL [Concomitant]
     Indication: CONTRACEPTION
     Dosage: 1-0-0
     Route: 048

REACTIONS (3)
  - ANGINA PECTORIS [None]
  - FATIGUE [None]
  - VENTRICULAR EXTRASYSTOLES [None]
